FAERS Safety Report 19727453 (Version 1)
Quarter: 2021Q3

REPORT INFORMATION
  Report Type: Other
  Country: FR (occurrence: FR)
  Receive Date: 20210820
  Receipt Date: 20210820
  Transmission Date: 20211014
  Serious: Yes (Hospitalization)
  Sender: FDA-Public Use
  Company Number: FR-CADILA HEALTHCARE LIMITED-FR-ZYDUS-068977

PATIENT

DRUGS (1)
  1. TAMOXIFENE [Suspect]
     Active Substance: TAMOXIFEN
     Indication: INVASIVE DUCTAL BREAST CARCINOMA
     Dosage: 10 MILLIGRAM, QD, 10 MG IN THE MORNING
     Route: 048
     Dates: start: 2019, end: 20210718

REACTIONS (2)
  - Cerebral venous thrombosis [Recovering/Resolving]
  - Pachymeningitis [Not Recovered/Not Resolved]

NARRATIVE: CASE EVENT DATE: 20210706
